FAERS Safety Report 24881941 (Version 2)
Quarter: 2025Q1

REPORT INFORMATION
  Report Type: Report from Study
  Country: US (occurrence: US)
  Receive Date: 20250124
  Receipt Date: 20250225
  Transmission Date: 20250409
  Serious: No
  Sender: BridgeBio Pharma
  Company Number: US-BRIDGEBIO-24US000007

PATIENT
  Sex: Male

DRUGS (1)
  1. ACORAMIDIS [Suspect]
     Active Substance: ACORAMIDIS
     Indication: Amyloidosis
     Dosage: 712 MILLIGRAM, BID
     Route: 048
     Dates: start: 20241214

REACTIONS (2)
  - Nasopharyngitis [Not Recovered/Not Resolved]
  - Asthenia [Unknown]
